FAERS Safety Report 4379944-5 (Version None)
Quarter: 2004Q2

REPORT INFORMATION
  Report Type: 
  Country: None (occurrence: None)
  Receive Date: 20040614
  Receipt Date: 20040531
  Transmission Date: 20050107
  Serious: Yes (Hospitalization)
  Sender: FDA-Public Use
  Company Number: K200400816

PATIENT
  Age: 90 Year
  Sex: Female

DRUGS (3)
  1. ALTACE [Suspect]
     Dosage: 2.5 MG, QD, ORAL  : 1.25 , MG, QD, ORAL
     Route: 048
     Dates: end: 20040101
  2. ALTACE [Suspect]
     Dosage: 2.5 MG, QD, ORAL  : 1.25 , MG, QD, ORAL
     Route: 048
     Dates: start: 20040101
  3. FUROSEMIDE [Suspect]
     Dosage: 10 MG, QD, ORAL
     Route: 048
     Dates: end: 20040330

REACTIONS (5)
  - DEHYDRATION [None]
  - GENERAL PHYSICAL HEALTH DETERIORATION [None]
  - HYPONATRAEMIA [None]
  - METABOLIC ACIDOSIS [None]
  - RENAL FAILURE ACUTE [None]
